FAERS Safety Report 4352031-8 (Version None)
Quarter: 2004Q2

REPORT INFORMATION
  Report Type: 
  Country: None (occurrence: None)
  Receive Date: 20040503
  Receipt Date: 20040423
  Transmission Date: 20050107
  Serious: Yes (Hospitalization)
  Sender: FDA-Public Use
  Company Number: FR-MERCK-0404FRA00084

PATIENT
  Age: 79 Year
  Sex: Male

DRUGS (10)
  1. ALLOPURINOL [Concomitant]
     Indication: HYPERURICAEMIA
     Route: 048
  2. AMOXICILLIN AND CLAVULANATE POTASSIUM [Concomitant]
     Route: 048
     Dates: start: 20040101
  3. ASPIRIN [Concomitant]
     Indication: ANGIOPATHY
     Route: 048
     Dates: start: 20040303
  4. CANDESARTAN CILEXETIL [Concomitant]
     Indication: HYPERTENSION
     Route: 048
  5. CLOPIDOGREL BISULFATE [Concomitant]
     Indication: THROMBOSIS PROPHYLAXIS
     Route: 048
  6. FUROSEMIDE [Concomitant]
     Route: 048
  7. INSULIN [Concomitant]
     Indication: DIABETES MELLITUS
     Route: 058
     Dates: end: 20040312
  8. INSULIN LISPRO [Concomitant]
     Indication: DIABETES MELLITUS
     Route: 058
     Dates: end: 20040312
  9. LEVOTHYROXINE SODIUM [Concomitant]
     Indication: HYPOTHYROIDISM
     Route: 048
  10. ZOCOR [Suspect]
     Indication: HYPERCHOLESTEROLAEMIA
     Route: 048
     Dates: start: 20040303, end: 20040312

REACTIONS (2)
  - HAEMORRHAGIC DISORDER [None]
  - THROMBOCYTOPENIA [None]
